FAERS Safety Report 7364518-4 (Version None)
Quarter: 2011Q1

REPORT INFORMATION
  Report Type: 
  Country: None (occurrence: None)
  Receive Date: 20110321
  Receipt Date: 20110315
  Transmission Date: 20110831
  Serious: Yes (Hospitalization)
  Sender: FDA-Public Use
  Company Number: FR-MERCK-1103FRA00085

PATIENT
  Age: 60 Year
  Sex: Female

DRUGS (4)
  1. LEVOTHYROXINE SODIUM [Concomitant]
     Route: 048
  2. ESTROGENS (UNSPECIFIED) [Concomitant]
     Route: 065
  3. ATORVASTATIN CALCIUM [Concomitant]
     Route: 048
  4. NOROXIN [Suspect]
     Route: 048
     Dates: start: 20101201, end: 20101201

REACTIONS (4)
  - OVERDOSE [None]
  - DEPRESSION [None]
  - ARTHRALGIA [None]
  - WEIGHT DECREASED [None]
